FAERS Safety Report 4795953-6 (Version None)
Quarter: 2005Q4

REPORT INFORMATION
  Report Type: 
  Country: None (occurrence: None)
  Receive Date: 20051012
  Receipt Date: 20051003
  Transmission Date: 20060501
  Serious: Yes (Hospitalization)
  Sender: FDA-Public Use
  Company Number: US-MERCK-0510USA02320

PATIENT
  Age: 50 Year
  Sex: Male
  Weight: 88 kg

DRUGS (2)
  1. VIOXX [Suspect]
     Indication: ARTHROPATHY
     Route: 048
     Dates: end: 20040623
  2. LORCET-HD [Concomitant]
     Indication: PAIN
     Route: 065

REACTIONS (3)
  - EMOTIONAL DISORDER [None]
  - MYOCARDIAL INFARCTION [None]
  - OVERDOSE [None]
